FAERS Safety Report 22261636 (Version 1)
Quarter: 2023Q2

REPORT INFORMATION
  Report Type: Spontaneous
  Country: US (occurrence: US)
  Receive Date: 20230427
  Receipt Date: 20230427
  Transmission Date: 20230721
  Serious: No
  Sender: FDA-Public Use
  Company Number: US-ELI_LILLY_AND_COMPANY-US202304012681

PATIENT
  Age: 12 Year
  Sex: Male

DRUGS (4)
  1. ADCIRCA [Suspect]
     Active Substance: TADALAFIL
     Indication: Pulmonary arterial hypertension
     Dosage: 40 MG, DAILY
     Route: 065
     Dates: start: 202211
  2. AMBRISENTAN [Suspect]
     Active Substance: AMBRISENTAN
     Indication: Pulmonary arterial hypertension
     Dosage: 10 MG, DAILY
     Route: 065
     Dates: start: 201811
  3. UPTRAVI [Suspect]
     Active Substance: SELEXIPAG
     Indication: Pulmonary arterial hypertension
     Dosage: UNK, UNKNOWN
     Route: 065
  4. UPTRAVI [Suspect]
     Active Substance: SELEXIPAG
     Dosage: 800 UG, BID
     Route: 065
     Dates: start: 202303

REACTIONS (4)
  - Gastroenteritis viral [Not Recovered/Not Resolved]
  - Diarrhoea [Not Recovered/Not Resolved]
  - Pain [Not Recovered/Not Resolved]
  - Vomiting [Recovered/Resolved]

NARRATIVE: CASE EVENT DATE: 20230319
